FAERS Safety Report 15049756 (Version 4)
Quarter: 2018Q4

REPORT INFORMATION
  Report Type: Spontaneous
  Country: HU (occurrence: HU)
  Receive Date: 20180622
  Receipt Date: 20181102
  Transmission Date: 20190204
  Serious: Yes (Hospitalization, Other)
  Sender: FDA-Public Use
  Company Number: PHHY2017HU201872

PATIENT
  Age: 73 Year
  Sex: Male
  Weight: 82 kg

DRUGS (6)
  1. OXALIPLATIN. [Suspect]
     Active Substance: OXALIPLATIN
     Indication: COLORECTAL CANCER METASTATIC
     Dosage: 150 MG, Q2W
     Route: 042
     Dates: start: 20160419
  2. BEVACIZUMAB. [Suspect]
     Active Substance: BEVACIZUMAB
     Indication: COLORECTAL CANCER METASTATIC
     Dosage: 10 MG/KG, QW
     Route: 042
     Dates: start: 20160419, end: 20160914
  3. CLEXANE [Concomitant]
     Active Substance: ENOXAPARIN SODIUM
     Indication: PULMONARY EMBOLISM
     Dosage: 1.2 ML, QD
     Route: 058
     Dates: start: 20171102
  4. OXALIPLATIN. [Suspect]
     Active Substance: OXALIPLATIN
     Dosage: 170 MG/M2, QW
     Route: 042
     Dates: start: 20160419
  5. BEVACIZUMAB. [Suspect]
     Active Substance: BEVACIZUMAB
     Dosage: 10 MG/KG, UNK
     Route: 065
  6. BEVACIZUMAB. [Suspect]
     Active Substance: BEVACIZUMAB
     Dosage: 5 MG/KG, Q2W
     Route: 042
     Dates: start: 20160419

REACTIONS (8)
  - Jaundice [Recovered/Resolved]
  - Platelet count decreased [Recovered/Resolved]
  - Thrombocytopenia [Unknown]
  - Platelet count decreased [Recovered/Resolved]
  - Lymphocyte count decreased [Recovered/Resolved]
  - Skin ulcer [Recovered/Resolved]
  - Neuropathy peripheral [Not Recovered/Not Resolved]
  - Embolism arterial [Recovered/Resolved]

NARRATIVE: CASE EVENT DATE: 20170419
